FAERS Safety Report 9709765 (Version 1)
Quarter: 2013Q4

REPORT INFORMATION
  Report Type: Spontaneous
  Country: NL (occurrence: NL)
  Receive Date: 20131126
  Receipt Date: 20131126
  Transmission Date: 20140711
  Serious: Yes (Hospitalization)
  Sender: FDA-Public Use
  Company Number: NL-BRISTOL-MYERS SQUIBB COMPANY-19830025

PATIENT
  Age: 80 Year
  Sex: Female

DRUGS (7)
  1. METFORMIN HCL [Suspect]
     Indication: TYPE 2 DIABETES MELLITUS
     Route: 048
     Dates: start: 2006, end: 20130323
  2. BISOPROLOL FUMARATE [Interacting]
     Indication: SUPRAVENTRICULAR TACHYCARDIA
     Route: 048
     Dates: start: 2011
  3. PREDNISOLONE [Interacting]
     Indication: CHRONIC OBSTRUCTIVE PULMONARY DISEASE
     Route: 048
     Dates: start: 201303
  4. ATROVENT INHALER [Concomitant]
     Dosage: VAPOR,1DF: 20MICROGRAM/DOSIS SPBS 200DO
  5. TOLBUTAMIDE [Concomitant]
     Dosage: TAB
     Route: 048
  6. VERAPAMIL HCL [Concomitant]
     Dosage: TAB
     Route: 048
  7. OXAZEPAM [Concomitant]
     Dosage: TAB
     Route: 048

REACTIONS (2)
  - Lactic acidosis [Recovered/Resolved]
  - Drug interaction [Unknown]
